FAERS Safety Report 6924308-0 (Version None)
Quarter: 2010Q3

REPORT INFORMATION
  Report Type: 
  Country: None (occurrence: None)
  Receive Date: 20100811
  Receipt Date: 20100811
  Transmission Date: 20110219
  Serious: Yes (Disabling)
  Sender: FDA-Public Use
  Company Number: None

PATIENT
  Age: 33 Year
  Sex: Female
  Weight: 70.3075 kg

DRUGS (2)
  1. NUVARING [Suspect]
     Indication: CONTRACEPTION
     Dosage: 1 RING 1X PER MONTH VAG
     Route: 067
     Dates: start: 20100601, end: 20100626
  2. NUVARING [Suspect]
     Indication: CONTRACEPTION
     Dosage: 1 RING 1X PER MONTH VAG
     Route: 067
     Dates: start: 20100701, end: 20100725

REACTIONS (2)
  - PAIN [None]
  - RASH PRURITIC [None]
